FAERS Safety Report 20653771 (Version 3)
Quarter: 2022Q3

REPORT INFORMATION
  Report Type: Spontaneous
  Country: US (occurrence: US)
  Receive Date: 20220330
  Receipt Date: 20220809
  Transmission Date: 20221027
  Serious: Yes (Other)
  Sender: FDA-Public Use
  Company Number: US-BRISTOL-MYERS SQUIBB COMPANY-2022-012581

PATIENT
  Age: 64 Year
  Sex: Female

DRUGS (4)
  1. POMALYST [Suspect]
     Active Substance: POMALIDOMIDE
     Indication: Plasma cell myeloma in remission
     Dosage: FREQUENCY- DAILY?BATCH NUMBER:C2473A, EXPIRE DATE: 31-MAR-2025
     Route: 048
     Dates: start: 20211023
  2. POMALYST [Suspect]
     Active Substance: POMALIDOMIDE
     Indication: Plasma cell myeloma
     Route: 048
     Dates: start: 202102
  3. POMALYST [Suspect]
     Active Substance: POMALIDOMIDE
     Dosage: 3MG PER DAY 14DAYS REPEAT FOR 4 WEEK
     Route: 065
     Dates: start: 20220104
  4. NINLARO [Suspect]
     Active Substance: IXAZOMIB CITRATE
     Indication: Plasma cell myeloma
     Route: 048
     Dates: start: 20220104

REACTIONS (5)
  - Neuropathy peripheral [Unknown]
  - Burning sensation [Unknown]
  - Paraesthesia [Unknown]
  - Peripheral swelling [Unknown]
  - Off label use [Unknown]
